FAERS Safety Report 5835867-3 (Version None)
Quarter: 2008Q3

REPORT INFORMATION
  Report Type: 
  Country: None (occurrence: None)
  Receive Date: 20080730
  Receipt Date: 20070809
  Transmission Date: 20090109
  Serious: Yes (Other)
  Sender: FDA-Public Use
  Company Number: 39807

PATIENT
  Age: 60 Year
  Sex: Male
  Weight: 131.0895 kg

DRUGS (2)
  1. PACLITAXEL [Suspect]
     Indication: NON-SMALL CELL LUNG CANCER
     Dosage: 410MG/Q 3WKS
     Dates: start: 20070709
  2. CARBOPLATIN [Concomitant]

REACTIONS (3)
  - FLUSHING [None]
  - NAUSEA [None]
  - WHEEZING [None]
